FAERS Safety Report 4906973-2 (Version None)
Quarter: 2006Q1

REPORT INFORMATION
  Report Type: 
  Country: None (occurrence: None)
  Receive Date: 20060207
  Receipt Date: 20060118
  Transmission Date: 20060701
  Serious: Yes (Death, Other)
  Sender: FDA-Public Use
  Company Number: US200601003114

PATIENT
  Age: 96 Year
  Sex: Male

DRUGS (5)
  1. HUMULIN 70/30 [Suspect]
     Indication: DIABETES MELLITUS
  2. CARTIA /AUS/ (ACETYLSALICYLIC ACID) [Concomitant]
  3. COUMADIN [Concomitant]
  4. DIGOXIN [Concomitant]
  5. CARDURA [Concomitant]

REACTIONS (2)
  - PROSTATE CANCER [None]
  - RENAL FAILURE [None]
